FAERS Safety Report 20128925 (Version 1)
Quarter: 2021Q4

REPORT INFORMATION
  Report Type: Spontaneous
  Country: JP (occurrence: JP)
  Receive Date: 20211130
  Receipt Date: 20211130
  Transmission Date: 20220303
  Serious: Yes (Other)
  Sender: FDA-Public Use
  Company Number: JP-PBT-000600

PATIENT
  Age: 73 Year

DRUGS (12)
  1. TACROLIMUS [Suspect]
     Active Substance: TACROLIMUS
     Indication: Scleritis
     Route: 061
  2. TACROLIMUS [Suspect]
     Active Substance: TACROLIMUS
     Indication: Glaucoma
     Route: 061
  3. TACROLIMUS [Suspect]
     Active Substance: TACROLIMUS
     Indication: Diabetic retinopathy
     Route: 061
  4. TACROLIMUS [Suspect]
     Active Substance: TACROLIMUS
     Indication: Scleritis
     Route: 061
  5. BETAMETHASONE [Suspect]
     Active Substance: BETAMETHASONE
     Indication: Scleritis
     Route: 061
  6. BETAMETHASONE [Suspect]
     Active Substance: BETAMETHASONE
     Indication: Glaucoma
     Route: 061
  7. BETAMETHASONE [Suspect]
     Active Substance: BETAMETHASONE
     Indication: Diabetic retinopathy
     Route: 061
  8. BETAMETHASONE [Suspect]
     Active Substance: BETAMETHASONE
     Indication: Scleritis
     Route: 061
  9. PREDNISOLONE [Suspect]
     Active Substance: PREDNISOLONE
     Indication: Scleritis
     Route: 048
  10. PREDNISOLONE [Suspect]
     Active Substance: PREDNISOLONE
     Indication: Glaucoma
     Route: 048
  11. PREDNISOLONE [Suspect]
     Active Substance: PREDNISOLONE
     Indication: Diabetic retinopathy
     Route: 048
  12. PREDNISOLONE [Suspect]
     Active Substance: PREDNISOLONE
     Indication: Scleritis
     Route: 048

REACTIONS (5)
  - Corneal endotheliitis [Recovered/Resolved]
  - Mydriasis [Unknown]
  - Cataract [Unknown]
  - Product use in unapproved indication [Unknown]
  - Drug ineffective [Unknown]
